FAERS Safety Report 6867628-0 (Version None)
Quarter: 2010Q3

REPORT INFORMATION
  Report Type: 
  Country: None (occurrence: None)
  Receive Date: 20100722
  Receipt Date: 20090921
  Transmission Date: 20110219
  Serious: No
  Sender: FDA-Public Use
  Company Number: US-BAUSCH-2009BL004802

PATIENT
  Age: 30 Year
  Sex: Female

DRUGS (1)
  1. OPCON-A [Suspect]
     Indication: OFF LABEL USE
     Route: 047
     Dates: start: 20090921, end: 20090921

REACTIONS (5)
  - DIZZINESS [None]
  - DRUG ADMINISTRATION ERROR [None]
  - MYDRIASIS [None]
  - VISION BLURRED [None]
  - WRONG DRUG ADMINISTERED [None]
